FAERS Safety Report 5487518-8 (Version None)
Quarter: 2007Q4

REPORT INFORMATION
  Report Type: 
  Country: None (occurrence: None)
  Receive Date: 20071016
  Receipt Date: 20071004
  Transmission Date: 20080405
  Serious: Yes (Other)
  Sender: FDA-Public Use
  Company Number: US-PFIZER INC-2007084116

PATIENT
  Sex: Female
  Weight: 86.6 kg

DRUGS (20)
  1. LYRICA [Suspect]
     Indication: FIBROMYALGIA
  2. METHOTREXATE [Concomitant]
  3. VITAMIN D [Concomitant]
  4. ALL OTHER THERAPEUTIC PRODUCTS [Concomitant]
  5. METOCLOPRAMIDE [Concomitant]
  6. PRILOSEC [Concomitant]
  7. DICYCLOMINE [Concomitant]
  8. ZYRTEC [Concomitant]
  9. PROVIGIL [Concomitant]
  10. ALL OTHER THERAPEUTIC PRODUCTS [Concomitant]
  11. CO-Q-10 [Concomitant]
  12. POTASSIUM CHLORIDE [Concomitant]
  13. FOLIC ACID [Concomitant]
  14. OSCAL [Concomitant]
  15. CENESTIN [Concomitant]
  16. TRAZODONE HCL [Concomitant]
  17. AMBIEN [Concomitant]
  18. VALIUM [Concomitant]
  19. MAGNESIUM SULFATE [Concomitant]
  20. MELATONIN [Concomitant]

REACTIONS (3)
  - EYE SWELLING [None]
  - FALL [None]
  - SWELLING FACE [None]
